FAERS Safety Report 6840670-1 (Version None)
Quarter: 2010Q3

REPORT INFORMATION
  Report Type: 
  Country: None (occurrence: None)
  Receive Date: 20100713
  Receipt Date: 20100713
  Transmission Date: 20110219
  Serious: Yes (Other)
  Sender: FDA-Public Use
  Company Number: None

PATIENT
  Sex: Male

DRUGS (1)
  1. HUMIRA [Suspect]
     Indication: PSORIASIS
     Dosage: 40MG EVERY 2WK ON WEDNESD SUBCUTANEOUS (FOR ABOUT A YEAR)
     Route: 058

REACTIONS (3)
  - MOUTH ULCERATION [None]
  - RASH [None]
  - TONGUE ULCERATION [None]
